FAERS Safety Report 9827792 (Version 1)
Quarter: 2013Q4

REPORT INFORMATION
  Report Type: Spontaneous
  Country: US (occurrence: None)
  Receive Date: 20131223
  Receipt Date: 20131223
  Transmission Date: 20140711
  Serious: No
  Sender: FDA-Public Use
  Company Number: 218101LEO

PATIENT
  Sex: Male

DRUGS (6)
  1. PICATO [Suspect]
     Indication: ACTINIC KERATOSIS
     Route: 061
     Dates: start: 20120618, end: 20120619
  2. PROSCAR (FINASTERIDE) [Concomitant]
  3. WELBUTRIN (BUPROPION) [Concomitant]
  4. WARFARIN (WARFARIN) [Concomitant]
  5. FLEXERIL (CYCLOBENZAPRINE HYDROCHLORIDE) [Concomitant]
  6. HYDROCODONE (HYDROCODONE) [Concomitant]

REACTIONS (3)
  - Application site burn [None]
  - Application site erythema [None]
  - Application site vesicles [None]
